FAERS Safety Report 23674631 (Version 2)
Quarter: 2024Q2

REPORT INFORMATION
  Report Type: Spontaneous
  Country: US (occurrence: US)
  Receive Date: 20240326
  Receipt Date: 20240402
  Transmission Date: 20240716
  Serious: Yes (Other)
  Sender: FDA-Public Use
  Company Number: US-SUN PHARMACEUTICAL INDUSTRIES LTD-2024R1-438427

PATIENT
  Age: 52 Year

DRUGS (2)
  1. TEMOZOLOMIDE [Suspect]
     Active Substance: TEMOZOLOMIDE
     Indication: Glioblastoma
     Dosage: 50 MILLIGRAM/SQ. METER, DAILY 28-DAY CYCLE
     Route: 065
  2. CATEQUENTINIB [Concomitant]
     Active Substance: CATEQUENTINIB
     Indication: Glioblastoma
     Dosage: 12 MILLIGRAM FOR 14 DAYS ON AND 7 DAYS OFF OF A 21-DAY CYCLE
     Route: 048

REACTIONS (1)
  - Disease progression [Unknown]
